FAERS Safety Report 4460124-X (Version None)
Quarter: 2004Q3

REPORT INFORMATION
  Report Type: 
  Country: None (occurrence: None)
  Receive Date: 20040928
  Receipt Date: 20031218
  Transmission Date: 20050211
  Serious: No
  Sender: FDA-Public Use
  Company Number: US-GLAXOSMITHKLINE-A0443674A

PATIENT
  Age: 80 Year
  Sex: Female

DRUGS (10)
  1. SEREVENT [Suspect]
     Dosage: 1PUFF TWICE PER DAY
     Route: 055
     Dates: start: 20030801
  2. ATROVENT [Concomitant]
  3. ALBUTEROL [Concomitant]
  4. HYDROCHLOROTHIAZIDE [Concomitant]
  5. DILTIAZEM [Concomitant]
  6. CALCIUM [Concomitant]
  7. ESTER C [Concomitant]
  8. FOLIC ACID [Concomitant]
  9. VIT E [Concomitant]
  10. DIDRONEL [Concomitant]

REACTIONS (1)
  - DRUG INEFFECTIVE [None]
